FAERS Safety Report 6014324-8 (Version None)
Quarter: 2008Q4

REPORT INFORMATION
  Report Type: 
  Country: None (occurrence: None)
  Receive Date: 20081219
  Receipt Date: 20080415
  Transmission Date: 20090506
  Serious: No
  Sender: FDA-Public Use
  Company Number: A0722853A

PATIENT
  Age: 82 Year
  Sex: Male

DRUGS (4)
  1. AVODART [Suspect]
     Indication: BENIGN PROSTATIC HYPERPLASIA
     Dosage: .5MG PER DAY
     Route: 048
     Dates: start: 20070101, end: 20080412
  2. FLOMAX [Suspect]
     Dosage: .4MG PER DAY
     Route: 048
     Dates: start: 20070101, end: 20080412
  3. VITAMINS [Concomitant]
  4. AMBIEN [Concomitant]

REACTIONS (2)
  - ABDOMINAL PAIN LOWER [None]
  - HEADACHE [None]
